FAERS Safety Report 4918674-5 (Version None)
Quarter: 2006Q1

REPORT INFORMATION
  Report Type: 
  Country: None (occurrence: None)
  Receive Date: 20060222
  Receipt Date: 20001214
  Transmission Date: 20060701
  Serious: Yes (Death, Hospitalization)
  Sender: FDA-Public Use
  Company Number: 2000AP05753

PATIENT
  Age: 31 Year
  Sex: Female

DRUGS (1)
  1. PROPOFOL [Suspect]
     Indication: SEDATION
     Dosage: PROPOFOL - MEAN DOSE
     Route: 042

REACTIONS (6)
  - ARRHYTHMIA [None]
  - BRAIN HERNIATION [None]
  - CARDIOVASCULAR DISORDER [None]
  - HYPERKALAEMIA [None]
  - HYPERLIPIDAEMIA [None]
  - METABOLIC ACIDOSIS [None]
